FAERS Safety Report 4690482-2 (Version None)
Quarter: 2005Q2

REPORT INFORMATION
  Report Type: 
  Country: None (occurrence: None)
  Receive Date: 20050615
  Receipt Date: 20050530
  Transmission Date: 20051028
  Serious: Yes (Death, Hospitalization)
  Sender: FDA-Public Use
  Company Number: HQWYE022231MAY05

PATIENT
  Age: 70 Year
  Sex: Female

DRUGS (2)
  1. ENBREL [Suspect]
     Indication: SCLERODERMA
     Route: 058
     Dates: start: 20050524, end: 20050524
  2. PREDNISONE [Concomitant]
     Indication: ANTIINFLAMMATORY THERAPY
     Dates: start: 20050524

REACTIONS (10)
  - ABDOMINAL PAIN [None]
  - ACUTE RESPIRATORY DISTRESS SYNDROME [None]
  - ANURIA [None]
  - CARDIAC FAILURE CONGESTIVE [None]
  - HEPATIC ENZYME INCREASED [None]
  - HISTIOCYTOSIS HAEMATOPHAGIC [None]
  - NAUSEA [None]
  - PANCYTOPENIA [None]
  - PRURITUS [None]
  - PULMONARY HAEMORRHAGE [None]
